FAERS Safety Report 6240926-X (Version None)
Quarter: 2009Q2

REPORT INFORMATION
  Report Type: 
  Country: None (occurrence: None)
  Receive Date: 20090623
  Receipt Date: 20090612
  Transmission Date: 20091009
  Serious: Yes (Other)
  Sender: FDA-Public Use
  Company Number: US-BAXTER-2009BH009803

PATIENT
  Sex: Female

DRUGS (2)
  1. MIDAZOLAM HYDROCHLORIDE [Suspect]
     Indication: EYE OPERATION
     Route: 042
     Dates: start: 20090401, end: 20090401
  2. MIDAZOLAM HYDROCHLORIDE [Suspect]
     Route: 042
     Dates: start: 20090401, end: 20090401

REACTIONS (2)
  - ABORTION SPONTANEOUS [None]
  - DRUG EXPOSURE DURING PREGNANCY [None]
